FAERS Safety Report 8359966-X (Version None)
Quarter: 2012Q2

REPORT INFORMATION
  Report Type: 
  Country: None (occurrence: None)
  Receive Date: 20120515
  Receipt Date: 20120502
  Transmission Date: 20120825
  Serious: Yes (Disabling, Other)
  Sender: FDA-Public Use
  Company Number: AU-JNJFOC-20120403254

PATIENT
  Sex: Female
  Weight: 90 kg

DRUGS (1)
  1. INVEGA [Suspect]
     Indication: SCHIZOPHRENIA
     Dosage: FOR TWO YEARS
     Route: 048
     Dates: start: 20090201

REACTIONS (3)
  - INFERTILITY FEMALE [None]
  - BLOOD PROLACTIN INCREASED [None]
  - AMENORRHOEA [None]
